FAERS Safety Report 5779919-5 (Version None)
Quarter: 2008Q2

REPORT INFORMATION
  Report Type: 
  Country: None (occurrence: None)
  Receive Date: 20080620
  Receipt Date: 20080611
  Transmission Date: 20081010
  Serious: Yes (Hospitalization)
  Sender: FDA-Public Use
  Company Number: US-JNJFOC-20071205057

PATIENT
  Sex: Female
  Weight: 68.95 kg

DRUGS (2)
  1. DURAGESIC-100 [Suspect]
     Indication: PAIN
     Route: 062
  2. CLANERA [Concomitant]
     Indication: HORMONE REPLACEMENT THERAPY
     Route: 062

REACTIONS (5)
  - COLITIS [None]
  - HIP ARTHROPLASTY [None]
  - INCORRECT DRUG ADMINISTRATION DURATION [None]
  - OSTEOARTHRITIS [None]
  - WHITE BLOOD CELL COUNT INCREASED [None]
